FAERS Safety Report 5596247-1 (Version None)
Quarter: 2007Q4

REPORT INFORMATION
  Report Type: 
  Country: None (occurrence: None)
  Receive Date: 20071218
  Receipt Date: 20070507
  Transmission Date: 20080405
  Serious: Yes (Hospitalization, Other)
  Sender: FDA-Public Use
  Company Number: 2007015027

PATIENT
  Age: 81 Year
  Sex: Female
  Weight: 63.5 kg

DRUGS (3)
  1. BEXTRA [Suspect]
     Indication: ARTHRITIS
     Dosage: 10 MG OR 20 MG (10 MG), ORAL
     Route: 048
     Dates: start: 20030620, end: 20050517
  2. IBUPROFEN (IBURPROFEN) [Concomitant]
  3. VOLTAREN [Concomitant]

REACTIONS (2)
  - CARDIAC FAILURE [None]
  - MYOCARDIAL INFARCTION [None]
